FAERS Safety Report 6873082-5 (Version None)
Quarter: 2010Q3

REPORT INFORMATION
  Report Type: 
  Country: None (occurrence: None)
  Receive Date: 20100723
  Receipt Date: 20090114
  Transmission Date: 20110219
  Serious: Yes (Other)
  Sender: FDA-Public Use
  Company Number: US-PFIZER INC-2008094093

PATIENT
  Sex: Female
  Weight: 108.9 kg

DRUGS (4)
  1. CHANTIX [Suspect]
     Indication: SMOKING CESSATION THERAPY
     Dosage: 1 MG, 2X/DAY
     Dates: start: 20080915, end: 20081105
  2. HYDROCHLOROTHIAZIDE [Concomitant]
  3. SIMVASTATIN [Concomitant]
  4. ANASTROZOLE [Concomitant]
     Dosage: UNK
     Dates: start: 20081001

REACTIONS (5)
  - DEPRESSED MOOD [None]
  - DEPRESSION [None]
  - NERVOUSNESS [None]
  - SUICIDAL IDEATION [None]
  - WITHDRAWAL SYNDROME [None]
